FAERS Safety Report 22035470 (Version 1)
Quarter: 2023Q1

REPORT INFORMATION
  Report Type: Spontaneous
  Country: US (occurrence: None)
  Receive Date: 20230223
  Receipt Date: 20230223
  Transmission Date: 20230418
  Serious: Yes (Disabling)
  Sender: FDA-Public Use
  Company Number: None

PATIENT
  Age: 34 Year
  Sex: Male
  Weight: 58.5 kg

DRUGS (2)
  1. KEPPRA [Suspect]
     Active Substance: LEVETIRACETAM
     Indication: Seizure
     Dosage: FREQUENCY : TWICE A DAY;?
     Route: 048
  2. XCOPRI [Concomitant]
     Active Substance: CENOBAMATE

REACTIONS (3)
  - Anger [None]
  - Seizure [None]
  - Partner stress [None]

NARRATIVE: CASE EVENT DATE: 20210701
